FAERS Safety Report 19525120 (Version 1)
Quarter: 2021Q3

REPORT INFORMATION
  Report Type: Spontaneous
  Country: US (occurrence: US)
  Receive Date: 20210712
  Receipt Date: 20210712
  Transmission Date: 20211014
  Serious: Yes (Hospitalization)
  Sender: FDA-Public Use
  Company Number: None

PATIENT
  Age: 82 Year
  Sex: Male

DRUGS (13)
  1. BUDESONIDE. [Concomitant]
     Active Substance: BUDESONIDE
  2. CLARITIN [Concomitant]
     Active Substance: LORATADINE
  3. DOXYCYCLINE. [Concomitant]
     Active Substance: DOXYCYCLINE
  4. AVODART [Concomitant]
     Active Substance: DUTASTERIDE
  5. MULTI VIT [Concomitant]
     Active Substance: VITAMINS
  6. OXYBUTYNIN. [Concomitant]
     Active Substance: OXYBUTYNIN CHLORIDE
  7. ZOCOR [Concomitant]
     Active Substance: SIMVASTATIN
  8. XOLAIR [Suspect]
     Active Substance: OMALIZUMAB
     Indication: ASTHMA
     Route: 058
     Dates: start: 20150909
  9. MEDI TUSSIN [Concomitant]
  10. ALBURTEROL [Concomitant]
  11. NASONEX [Concomitant]
     Active Substance: MOMETASONE FUROATE
  12. SINGULAIR [Concomitant]
     Active Substance: MONTELUKAST SODIUM
  13. CALCIUM [Concomitant]
     Active Substance: CALCIUM

REACTIONS (1)
  - Coronary arterial stent insertion [None]

NARRATIVE: CASE EVENT DATE: 20210629
